FAERS Safety Report 19159224 (Version 1)
Quarter: 2021Q2

REPORT INFORMATION
  Report Type: Spontaneous
  Country: FR (occurrence: FR)
  Receive Date: 20210420
  Receipt Date: 20210420
  Transmission Date: 20210717
  Serious: Yes (Hospitalization)
  Sender: FDA-Public Use
  Company Number: FR-TEVA-2021-FR-1901726

PATIENT
  Age: 86 Year
  Sex: Male
  Weight: 113 kg

DRUGS (15)
  1. ATORVASTATINE [Concomitant]
     Active Substance: ATORVASTATIN
  2. ALLOPURINOL. [Concomitant]
     Active Substance: ALLOPURINOL
  3. TEGELINE [Suspect]
     Active Substance: HUMAN IMMUNOGLOBULIN G
     Indication: POLYNEUROPATHY
     Dosage: 140 GRAM
     Route: 042
     Dates: start: 20200420, end: 20200424
  4. ZOXAN LP 8 MG, COMPRIME A LIBERATION PROLONGEE [Concomitant]
     Active Substance: DOXAZOSIN MESYLATE
  5. PANTOPRAZOLE [Concomitant]
     Active Substance: PANTOPRAZOLE
  6. ASPIRINE PROTECT 100 MG, COMPRIME GASTRO?RESISTANT [Concomitant]
     Active Substance: ASPIRIN
  7. FUROSEMIDE. [Concomitant]
     Active Substance: FUROSEMIDE
  8. NOVORAPID [Concomitant]
     Active Substance: INSULIN ASPART
  9. PREGABALINE [Concomitant]
     Active Substance: PREGABALIN
  10. NOVOMIX [Concomitant]
     Active Substance: INSULIN ASPART
  11. SPIRONOLACTONE. [Suspect]
     Active Substance: SPIRONOLACTONE
     Indication: HYPERTENSION
     Dosage: 25 MG
     Route: 065
     Dates: end: 20200428
  12. VERAPAMIL (CHLORHYDRATE DE) [Concomitant]
     Active Substance: VERAPAMIL HYDROCHLORIDE
  13. STAGID 700 MG, COMPRIME SECABLE [Concomitant]
     Active Substance: METFORMIN PAMOATE
  14. ELIQUIS [Concomitant]
     Active Substance: APIXABAN
  15. IRBESARTAN. [Suspect]
     Active Substance: IRBESARTAN
     Indication: HYPERTENSION
     Dosage: 300 MG
     Route: 048
     Dates: start: 20200428

REACTIONS (1)
  - Acute kidney injury [Recovered/Resolved]

NARRATIVE: CASE EVENT DATE: 20200428
